FAERS Safety Report 5523610-7 (Version None)
Quarter: 2007Q4

REPORT INFORMATION
  Report Type: 
  Country: None (occurrence: None)
  Receive Date: 20071121
  Receipt Date: 20071114
  Transmission Date: 20080405
  Serious: Yes (Hospitalization)
  Sender: FDA-Public Use
  Company Number: DE-SANOFI-SYNTHELABO-A01200710645

PATIENT
  Age: 37 Year
  Sex: Female

DRUGS (1)
  1. UNO-ENANTONE [Suspect]
     Indication: IN VITRO FERTILISATION
     Route: 065

REACTIONS (2)
  - INSOMNIA [None]
  - SCHIZOAFFECTIVE DISORDER [None]
